FAERS Safety Report 9627957 (Version 1)
Quarter: 2013Q4

REPORT INFORMATION
  Report Type: Spontaneous
  Country: US (occurrence: US)
  Receive Date: 20131016
  Receipt Date: 20131016
  Transmission Date: 20140711
  Serious: No
  Sender: FDA-Public Use
  Company Number: US-009507513-1310USA001207

PATIENT
  Age: 65 Year
  Sex: Male
  Weight: 72.11 kg

DRUGS (15)
  1. PEGINTRON [Suspect]
     Dosage: 120MCG/0.5 ML, QW REDIPEN
     Route: 058
  2. RIBAVIRIN (WARRICK) [Suspect]
     Dosage: UNK
     Route: 048
  3. LEVOTHYROXINE SODIUM [Concomitant]
     Route: 048
  4. TAMSULOSIN HYDROCHLORIDE [Concomitant]
     Route: 048
  5. VICTOZA [Concomitant]
  6. ORIGIN ALPHA LIPOIC ACID [Concomitant]
     Route: 048
  7. VITAMINS (UNSPECIFIED) [Concomitant]
     Route: 048
  8. CHROMIUM (UNSPECIFIED) [Concomitant]
     Route: 048
  9. CALCIUM (UNSPECIFIED) (+) MAGNESIUM (UNSPECIFIED) [Concomitant]
     Route: 048
  10. OMEGA-3 MARINE TRIGLYCERIDES [Concomitant]
     Route: 048
  11. ASPIRIN [Concomitant]
     Route: 048
  12. MILK THISTLE [Concomitant]
     Route: 048
  13. METFORMIN [Concomitant]
     Route: 048
  14. GLYBURIDE [Concomitant]
     Route: 048
  15. VITAMIN B COMPLEX [Concomitant]
     Route: 048

REACTIONS (6)
  - Nocturia [Unknown]
  - Nausea [Unknown]
  - Decreased appetite [Unknown]
  - Chills [Unknown]
  - Fatigue [Unknown]
  - Device failure [Unknown]
